FAERS Safety Report 9783692 (Version 2)
Quarter: 2014Q1

REPORT INFORMATION
  Report Type: Spontaneous
  Country: IN (occurrence: None)
  Receive Date: 20131223
  Receipt Date: 20140106
  Transmission Date: 20141002
  Serious: Yes (Hospitalization)
  Sender: FDA-Public Use
  Company Number: AUR-APL-2013-10695

PATIENT
  Age: 55 Year
  Sex: Male

DRUGS (3)
  1. RAMIPRIL [Suspect]
     Indication: PRODUCT USED FOR UNKNOWN INDICATION
  2. LITHIUM CARBONATE (LITHIUM CARBONATE) [Suspect]
     Indication: BIPOLAR DISORDER
  3. CARBAMAZEPINE (CARBAMAZEPINE) [Concomitant]

REACTIONS (8)
  - Drug interaction [None]
  - Dizziness [None]
  - Vomiting [None]
  - Syncope [None]
  - Toxicity to various agents [None]
  - Sinus arrest [None]
  - Nodal rhythm [None]
  - Sinus arrhythmia [None]
